FAERS Safety Report 15999749 (Version 22)
Quarter: 2025Q1

REPORT INFORMATION
  Report Type: Spontaneous
  Country: US (occurrence: US)
  Receive Date: 20190225
  Receipt Date: 20250320
  Transmission Date: 20250409
  Serious: Yes (Other)
  Sender: PFIZER
  Company Number: US-PFIZER INC-2019082864

PATIENT
  Age: 77 Year
  Sex: Female

DRUGS (9)
  1. EUCRISA [Suspect]
     Active Substance: CRISABOROLE
     Indication: Dermatitis atopic
     Route: 061
     Dates: start: 201807
  2. EUCRISA [Suspect]
     Active Substance: CRISABOROLE
     Dosage: APPLY TO THE AFFECTED AREA ON ENTIRE TRUNK AND BILATERAL LEGS, TWICE DAILY
     Route: 061
     Dates: start: 20181102
  3. EUCRISA [Suspect]
     Active Substance: CRISABOROLE
     Dosage: UNK, DAILY
     Dates: start: 20210805
  4. EUCRISA [Suspect]
     Active Substance: CRISABOROLE
     Dates: start: 20220802
  5. EUCRISA [Suspect]
     Active Substance: CRISABOROLE
     Dates: start: 20230808
  6. EUCRISA [Suspect]
     Active Substance: CRISABOROLE
     Route: 061
     Dates: start: 20241112
  7. BETAMETHASONE DIPROPIONATE [Concomitant]
     Active Substance: BETAMETHASONE DIPROPIONATE
     Indication: Dermatitis atopic
  8. PARAFFIN [Concomitant]
     Active Substance: PARAFFIN
  9. CETAPHIL [BUTYL HYDROXYBENZOATE;CETYL ALCOHOL;PROPYLENE GLYCOL;SODIUM [Concomitant]

REACTIONS (9)
  - Parkinson^s disease [Unknown]
  - Urinary tract infection [Unknown]
  - Application site pain [Recovered/Resolved]
  - Skin burning sensation [Unknown]
  - Skin exfoliation [Unknown]
  - Rash pruritic [Unknown]
  - Sensitivity to weather change [Unknown]
  - Condition aggravated [Unknown]
  - Dry skin [Unknown]
